FAERS Safety Report 6904200-8 (Version None)
Quarter: 2010Q3

REPORT INFORMATION
  Report Type: 
  Country: None (occurrence: None)
  Receive Date: 20100804
  Receipt Date: 20090327
  Transmission Date: 20110219
  Serious: No
  Sender: FDA-Public Use
  Company Number: US-PFIZER INC-2009191096

PATIENT
  Sex: Female
  Weight: 79.4 kg

DRUGS (1)
  1. LYRICA [Suspect]
     Indication: PAIN
     Dosage: 500 MG/DAY
     Route: 048
     Dates: start: 20081201

REACTIONS (1)
  - PAIN [None]
